FAERS Safety Report 8172132-6 (Version None)
Quarter: 2012Q1

REPORT INFORMATION
  Report Type: 
  Country: None (occurrence: None)
  Receive Date: 20120228
  Receipt Date: 20120221
  Transmission Date: 20120608
  Serious: Yes (Hospitalization)
  Sender: FDA-Public Use
  Company Number: GB-ASTRAZENECA-2012SE13011

PATIENT
  Age: 46 Year
  Sex: Male

DRUGS (4)
  1. CALCIDIA [Concomitant]
  2. FOSCAVIR [Suspect]
     Indication: CYTOMEGALOVIRUS INFECTION
     Route: 042
     Dates: start: 20111027
  3. ORBENIN CAP [Concomitant]
  4. ARANESP [Concomitant]

REACTIONS (2)
  - SCROTAL ULCER [None]
  - RENAL TUBULAR DISORDER [None]
